FAERS Safety Report 15098150 (Version 2)
Quarter: 2018Q3

REPORT INFORMATION
  Report Type: Spontaneous
  Country: US (occurrence: US)
  Receive Date: 20180702
  Receipt Date: 20180920
  Transmission Date: 20181010
  Serious: No
  Sender: FDA-Public Use
  Company Number: US-IGSA-SR10005827

PATIENT
  Age: 48 Year
  Sex: Female

DRUGS (1)
  1. GAMUNEX?C [Suspect]
     Active Substance: HUMAN IMMUNOGLOBULIN G
     Indication: PRODUCT USED FOR UNKNOWN INDICATION
     Route: 042

REACTIONS (6)
  - Chills [Unknown]
  - Swelling [Unknown]
  - Headache [Unknown]
  - Chest discomfort [Unknown]
  - Feeling abnormal [Unknown]
  - Dysphonia [Unknown]
